FAERS Safety Report 5282329-0 (Version None)
Quarter: 2007Q1

REPORT INFORMATION
  Report Type: 
  Country: None (occurrence: None)
  Receive Date: 20070331
  Receipt Date: 20070122
  Transmission Date: 20070707
  Serious: Yes (Other)
  Sender: FDA-Public Use
  Company Number: US-PFIZER INC-2007005105

PATIENT
  Sex: Male
  Weight: 83.5 kg

DRUGS (9)
  1. LYRICA [Suspect]
     Indication: PRURITUS
     Route: 048
     Dates: start: 20070110, end: 20070112
  2. LYRICA [Suspect]
     Indication: ILL-DEFINED DISORDER
  3. METFORMIN [Concomitant]
  4. ACTOS [Concomitant]
  5. LORCET-HD [Concomitant]
  6. ALL OTHER THERAPEUTIC PRODUCTS [Concomitant]
  7. PREVACID [Concomitant]
  8. HYDROXYZINE [Concomitant]
  9. TRIAMCINOLONE [Concomitant]

REACTIONS (5)
  - DRY MOUTH [None]
  - HYPERSOMNIA [None]
  - OEDEMA PERIPHERAL [None]
  - SWELLING FACE [None]
  - VISION BLURRED [None]
